FAERS Safety Report 7528060 (Version 2)
Quarter: 2012Q4

REPORT INFORMATION
  Report Type: 
  Country: US (occurrence: US)
  Receive Date: 20100804
  Receipt Date: 20121121
  Transmission Date: 20130627
  Serious: Yes (Hospitalization, Other)
  Sender: FDA-Public Use
  Company Number: US-ELI_LILLY_AND_COMPANY-US201007007349

PATIENT
  Age: 62 Year
  Sex: Female

DRUGS (1)
  1. BYETTA [Suspect]
     Dosage: UNK UNK, unknown
     Route: 058
     Dates: start: 200608, end: 200808

REACTIONS (2)
  - Pancreatitis acute [Unknown]
  - Biliary dyskinesia [Unknown]
